FAERS Safety Report 7305330-1 (Version None)
Quarter: 2011Q1

REPORT INFORMATION
  Report Type: 
  Country: None (occurrence: None)
  Receive Date: 20110222
  Receipt Date: 20110207
  Transmission Date: 20110831
  Serious: Yes (Hospitalization, Other)
  Sender: FDA-Public Use
  Company Number: PHHY2011JP09845

PATIENT
  Age: 27 Year
  Sex: Female

DRUGS (9)
  1. BASILIXIMAB [Suspect]
     Indication: RENAL TRANSPLANT
     Dosage: TWO DOSES OF 20 MG, EACH
  2. MYCOPHENOLATE MOFETIL [Suspect]
     Dosage: 1000 MG/DAY
  3. MYCOPHENOLATE MOFETIL [Suspect]
     Dosage: 0.5 MG, BID
  4. TACROLIMUS [Suspect]
  5. TRIMETHOPRIM [Concomitant]
  6. SULFAMETHOXAZOLE [Concomitant]
  7. G-CSF [Concomitant]
     Dosage: 75 UG, QD
  8. MYCOPHENOLATE MOFETIL [Suspect]
     Dosage: 750 MG/DAY
  9. MYCOPHENOLATE MOFETIL [Suspect]
     Dosage: 500 MG/DAY

REACTIONS (5)
  - WHITE BLOOD CELL COUNT DECREASED [None]
  - AGRANULOCYTOSIS [None]
  - NEUTROPHIL COUNT DECREASED [None]
  - BLOOD PRESSURE DECREASED [None]
  - NAUSEA [None]
